FAERS Safety Report 4987590-5 (Version None)
Quarter: 2006Q2

REPORT INFORMATION
  Report Type: 
  Country: None (occurrence: None)
  Receive Date: 20060501
  Receipt Date: 20051220
  Transmission Date: 20061013
  Serious: Yes (Hospitalization, Other)
  Sender: FDA-Public Use
  Company Number: JP-NOVOPROD-249529

PATIENT
  Age: 75 Year
  Sex: Male
  Weight: 75 kg

DRUGS (19)
  1. ASPIRIN [Concomitant]
     Dosage: 40 MG, UNK
     Route: 048
     Dates: start: 20031001
  2. PANALDINE [Concomitant]
     Dosage: 150 MG, UNK
     Dates: start: 20031001
  3. ARTIST [Concomitant]
     Dosage: 10 MG, UNK
     Route: 048
     Dates: start: 20031001
  4. GASTER [Concomitant]
     Dosage: 20 MG, UNK
     Route: 048
     Dates: start: 20031001
  5. VASOLAN [Concomitant]
     Dosage: 120 MG, UNK
     Route: 048
     Dates: start: 20050701
  6. FIRSTCIN [Concomitant]
     Dosage: 2 G, UNK
     Route: 042
     Dates: start: 20051111, end: 20051115
  7. CRAVIT [Concomitant]
     Dosage: 300 MG, UNK
     Route: 048
     Dates: start: 20051126, end: 20051129
  8. SUPLATAST TOSILATE [Concomitant]
     Dosage: 300 MG, UNK
     Dates: start: 20051129
  9. INNOLET 30R CHU [Suspect]
     Indication: INSULIN-REQUIRING TYPE II DIABETES MELLITUS
     Route: 058
     Dates: start: 20030101, end: 20031001
  10. NOVOLIN R [Suspect]
     Indication: INSULIN-REQUIRING TYPE II DIABETES MELLITUS
     Route: 058
     Dates: start: 20031101, end: 20050712
  11. NOVOLIN R [Suspect]
     Dates: start: 20051212
  12. NOVORAPID 30 MIX CHU FLEXPEN [Suspect]
     Dosage: 54 IU, QD
     Route: 058
     Dates: start: 20050713, end: 20051102
  13. NOVOLIN N [Suspect]
     Indication: INSULIN-REQUIRING TYPE II DIABETES MELLITUS
     Route: 058
     Dates: start: 20051103, end: 20051107
  14. NOVOLIN N [Suspect]
     Dates: start: 20051212
  15. NOVORAPID CHU FLEXPEN [Suspect]
     Dosage: UNK, UNK
     Route: 058
     Dates: start: 20051103, end: 20051205
  16. BASEN [Concomitant]
     Dosage: .3 MG, UNK
     Route: 048
     Dates: start: 20051103
  17. AMARYL [Concomitant]
     Dosage: 1-6 MG
     Route: 048
     Dates: start: 20051205, end: 20051211
  18. LASIX [Concomitant]
     Dosage: 20 MG, UNK
     Route: 048
     Dates: start: 20050401
  19. MELBIN [Concomitant]
     Dosage: 7.5 MG, UNK
     Dates: start: 20040101, end: 20050401

REACTIONS (5)
  - ANTI-INSULIN ANTIBODY POSITIVE [None]
  - BLOOD GLUCOSE INCREASED [None]
  - DRUG HYPERSENSITIVITY [None]
  - EOSINOPHIL PERCENTAGE INCREASED [None]
  - GLYCOSYLATED HAEMOGLOBIN INCREASED [None]
